FAERS Safety Report 16144915 (Version 1)
Quarter: 2019Q2

REPORT INFORMATION
  Report Type: Spontaneous
  Country: US (occurrence: US)
  Receive Date: 20190401
  Receipt Date: 20190401
  Transmission Date: 20190711
  Serious: Yes (Disabling)
  Sender: FDA-Public Use
  Company Number: None

PATIENT
  Age: 43 Year
  Sex: Male
  Weight: 66.9 kg

DRUGS (4)
  1. VOLTAREN [Suspect]
     Active Substance: DICLOFENAC SODIUM
     Indication: PRODUCT USED FOR UNKNOWN INDICATION
     Route: 051
     Dates: end: 20180629
  2. MELOXICAM. [Suspect]
     Active Substance: MELOXICAM
     Route: 048
     Dates: end: 20180629
  3. NAPROXEN. [Concomitant]
     Active Substance: NAPROXEN
     Dates: end: 20180629
  4. IBUPROFEN. [Concomitant]
     Active Substance: IBUPROFEN
     Dates: end: 20180629

REACTIONS (4)
  - Fall [None]
  - Haemodialysis [None]
  - Focal segmental glomerulosclerosis [None]
  - Acute kidney injury [None]

NARRATIVE: CASE EVENT DATE: 20180629
